FAERS Safety Report 22400197 (Version 1)
Quarter: 2023Q2

REPORT INFORMATION
  Report Type: Spontaneous
  Country: MX (occurrence: None)
  Receive Date: 20230601
  Receipt Date: 20230601
  Transmission Date: 20230721
  Serious: Yes (Hospitalization)
  Sender: FDA-Public Use
  Company Number: None

PATIENT
  Age: 6 Year
  Sex: Female
  Weight: 20 kg

DRUGS (8)
  1. OXCARBAZEPINE [Suspect]
     Active Substance: OXCARBAZEPINE
     Indication: Epilepsy
     Dosage: OTHER QUANTITY : 5 MILILITROS;?FREQUENCY : EVERY 12 HOURS;?
     Route: 048
     Dates: start: 20220404, end: 20230417
  2. LEVETIRACETAM [Concomitant]
     Active Substance: LEVETIRACETAM
  3. CLOBAZAM [Concomitant]
     Active Substance: CLOBAZAM
  4. LAMOTRIGINE [Concomitant]
     Active Substance: LAMOTRIGINE
  5. RISPERIDONE [Concomitant]
     Active Substance: RISPERIDONE
  6. COENZYME Q10 [Concomitant]
     Active Substance: DIETARY SUPPLEMENT\UBIDECARENONE
  7. LEVOCARNITINE [Concomitant]
     Active Substance: LEVOCARNITINE
  8. DIETARY SUPPLEMENT\UBIDECARENONE [Concomitant]
     Active Substance: DIETARY SUPPLEMENT\UBIDECARENONE

REACTIONS (4)
  - Hypersomnia [None]
  - Somnolence [None]
  - Therapy change [None]
  - Overdose [None]

NARRATIVE: CASE EVENT DATE: 20221224
